FAERS Safety Report 8547414-6 (Version None)
Quarter: 2012Q3

REPORT INFORMATION
  Report Type: 
  Country: None (occurrence: None)
  Receive Date: 20120727
  Receipt Date: 20120411
  Transmission Date: 20120928
  Serious: No
  Sender: FDA-Public Use
  Company Number: US-ASTRAZENECA-2012SE23731

PATIENT
  Age: 43 Year
  Sex: Male
  Weight: 68 kg

DRUGS (5)
  1. VERAPAMIL [Concomitant]
     Indication: PAIN
  2. CYMBALTA [Concomitant]
     Indication: PAIN
  3. SEROQUEL [Suspect]
     Indication: SLEEP DISORDER
     Route: 048
  4. VICODIN [Concomitant]
     Indication: PAIN
  5. NEURONTIN [Concomitant]
     Indication: PAIN

REACTIONS (10)
  - AFFECTIVE DISORDER [None]
  - MENTAL DISORDER [None]
  - OFF LABEL USE [None]
  - SOMNOLENCE [None]
  - ADVERSE EVENT [None]
  - HYPOAESTHESIA [None]
  - SEDATION [None]
  - BLUNTED AFFECT [None]
  - FATIGUE [None]
  - PAIN [None]
